FAERS Safety Report 8421032 (Version 3)
Quarter: 2015Q3

REPORT INFORMATION
  Report Type: Spontaneous
  Country: US (occurrence: US)
  Receive Date: 20120222
  Receipt Date: 20150728
  Transmission Date: 20151125
  Serious: No
  Sender: FDA-Public Use
  Company Number: US-PFIZER INC-2011212885

PATIENT
  Age: 56 Year
  Sex: Female
  Weight: 61.68 kg

DRUGS (7)
  1. KLONOPIN [Concomitant]
     Active Substance: CLONAZEPAM
     Indication: SLEEP DISORDER
  2. KLONOPIN [Concomitant]
     Active Substance: CLONAZEPAM
     Indication: PANIC ATTACK
     Dosage: 2 MG, THREE OR FOUR TIMES A DAYUNK
  3. DEXILANT [Concomitant]
     Active Substance: DEXLANSOPRAZOLE
     Indication: CONSTIPATION
     Dosage: UNK
  4. AVINZA [Suspect]
     Active Substance: MORPHINE SULFATE
     Dosage: 120 MG,DAILY
     Route: 048
     Dates: start: 20110818, end: 20110909
  5. DEXILANT [Concomitant]
     Active Substance: DEXLANSOPRAZOLE
     Indication: ABDOMINAL DISCOMFORT
  6. KLONOPIN [Concomitant]
     Active Substance: CLONAZEPAM
     Indication: ANXIETY
  7. MORPHINE SULFATE. [Concomitant]
     Active Substance: MORPHINE SULFATE
     Indication: PAIN
     Dosage: 100 MG, 2X/DAY
     Dates: start: 2003, end: 20110816

REACTIONS (11)
  - Pyrexia [Unknown]
  - Anxiety [Unknown]
  - Sinus disorder [Not Recovered/Not Resolved]
  - Muscle spasms [Unknown]
  - Vomiting [Unknown]
  - Pain [Not Recovered/Not Resolved]
  - Diarrhoea [Unknown]
  - Insomnia [Unknown]
  - Dyskinesia [Unknown]
  - Restlessness [Not Recovered/Not Resolved]
  - Musculoskeletal stiffness [Not Recovered/Not Resolved]

NARRATIVE: CASE EVENT DATE: 201108
